FAERS Safety Report 6183581-X (Version None)
Quarter: 2009Q2

REPORT INFORMATION
  Report Type: 
  Country: None (occurrence: None)
  Receive Date: 20090508
  Receipt Date: 20090428
  Transmission Date: 20091009
  Serious: Yes (Other)
  Sender: FDA-Public Use
  Company Number: US-PFIZER INC-2009205918

PATIENT
  Sex: Male
  Weight: 42.177 kg

DRUGS (4)
  1. GEODON [Suspect]
     Indication: AUTISM SPECTRUM DISORDER
     Route: 048
     Dates: start: 20090301
  2. GEODON [Suspect]
     Indication: BIPOLAR DISORDER
  3. ACIPHEX [Concomitant]
     Dosage: UNK
  4. LEVOTHYROXINE SODIUM [Concomitant]
     Dosage: UNK

REACTIONS (6)
  - ANAEMIA [None]
  - DRUG EFFECT INCREASED [None]
  - DRUG INEFFECTIVE [None]
  - FEELING ABNORMAL [None]
  - KIDNEY INFECTION [None]
  - RESTLESSNESS [None]
